FAERS Safety Report 15735642 (Version 1)
Quarter: 2018Q4

REPORT INFORMATION
  Report Type: Spontaneous
  Country: US (occurrence: US)
  Receive Date: 20181218
  Receipt Date: 20181218
  Transmission Date: 20190205
  Serious: Yes (Other)
  Sender: FDA-Public Use
  Company Number: US-009507513-1812USA004843

PATIENT
  Age: 57 Year

DRUGS (1)
  1. BELSOMRA [Suspect]
     Active Substance: SUVOREXANT
     Indication: INSOMNIA
     Dosage: 10 MILLIGRAM
     Route: 048
     Dates: start: 20181206

REACTIONS (9)
  - Hypersensitivity [Unknown]
  - Product dose omission [Unknown]
  - Hemiparesis [Unknown]
  - Rash [Unknown]
  - Pruritus [Unknown]
  - Dyspnoea [Unknown]
  - Sleep terror [Unknown]
  - Dizziness [Unknown]
  - Insomnia [Unknown]

NARRATIVE: CASE EVENT DATE: 201812
